FAERS Safety Report 5358939-9 (Version None)
Quarter: 2007Q2

REPORT INFORMATION
  Report Type: 
  Country: None (occurrence: None)
  Receive Date: 20070615
  Receipt Date: 20070608
  Transmission Date: 20071010
  Serious: Yes (Hospitalization)
  Sender: FDA-Public Use
  Company Number: B0475219A

PATIENT
  Age: 76 Year
  Sex: Female

DRUGS (2)
  1. LEUKERAN [Suspect]
     Indication: GLOMERULONEPHRITIS PROLIFERATIVE
     Dosage: 8MG PER DAY
     Route: 048
     Dates: start: 20061115, end: 20070111
  2. LEUKERAN [Suspect]
     Indication: NEPHROTIC SYNDROME
     Dosage: 8MG PER DAY
     Route: 048
     Dates: start: 20061115, end: 20070111

REACTIONS (1)
  - AGRANULOCYTOSIS [None]
